FAERS Safety Report 8206234-2 (Version None)
Quarter: 2012Q1

REPORT INFORMATION
  Report Type: 
  Country: None (occurrence: None)
  Receive Date: 20120313
  Receipt Date: 20120307
  Transmission Date: 20120608
  Serious: Yes (Hospitalization)
  Sender: FDA-Public Use
  Company Number: PHHY2012VE020870

PATIENT
  Sex: Female

DRUGS (4)
  1. DIOVENOR [Concomitant]
  2. ZOLEDRONOC ACID [Suspect]
     Indication: OSTEOPOROSIS
     Dosage: UNK UKN, UNK
     Route: 042
     Dates: start: 20110301
  3. CITRACAL + D [Concomitant]
     Indication: OSTEOPOROSIS
     Dosage: 1 DF, Q12H
  4. LOVAZA [Concomitant]
     Dosage: 1 DF, QD

REACTIONS (1)
  - INGUINAL HERNIA [None]
